FAERS Safety Report 9591656 (Version 1)
Quarter: 2013Q4

REPORT INFORMATION
  Report Type: Spontaneous
  Country: US (occurrence: US)
  Receive Date: 20131003
  Receipt Date: 20131003
  Transmission Date: 20140711
  Serious: No
  Sender: FDA-Public Use
  Company Number: US-AMGEN-USASP2012082143

PATIENT
  Sex: Female

DRUGS (13)
  1. ENBREL [Suspect]
     Indication: RHEUMATOID ARTHRITIS
     Dosage: 50 MG, QWK
     Route: 058
     Dates: start: 2006, end: 2011
  2. METHOTREXATE [Concomitant]
  3. COUMADIN                           /00014802/ [Concomitant]
     Dosage: 4 MG, UNK
  4. LYRICA [Concomitant]
     Dosage: 50 MG, UNK
  5. FOLIC ACID [Concomitant]
     Dosage: 1 MG, UNK
  6. WELLBUTRIN [Concomitant]
     Dosage: 100 MG, UNK
  7. PRILOSEC                           /00661201/ [Concomitant]
     Dosage: 20 MG, UNK
  8. BYSTOLIC [Concomitant]
     Dosage: 5 MG, UNK
  9. PREDNISONE [Concomitant]
     Dosage: 5 MG, UNK
  10. POTASSIUM [Concomitant]
     Dosage: 75 MG, UNK
  11. PERCOCET                           /00446701/ [Concomitant]
     Dosage: 7.5-500, UKN, UKN
  12. VITAMIN D                          /00107901/ [Concomitant]
     Dosage: 400 UNIT, UNK
  13. LIPITOR [Concomitant]
     Dosage: 10 MG, UNK

REACTIONS (1)
  - Stomatitis [Unknown]
